FAERS Safety Report 7899689 (Version 5)
Quarter: 2012Q4

REPORT INFORMATION
  Report Type: 
  Country: DE (occurrence: DE)
  Receive Date: 20110414
  Receipt Date: 20121109
  Transmission Date: 20130627
  Serious: Yes (Hospitalization, Other)
  Sender: FDA-Public Use
  Company Number: PHHY2009DE68274

PATIENT
  Sex: Male

DRUGS (1)
  1. EXTAVIA [Suspect]
     Indication: MULTIPLE SCLEROSIS
     Dosage: 250 ug, QOD
     Route: 058
     Dates: start: 20090729, end: 20121029

REACTIONS (11)
  - Muscular weakness [Unknown]
  - Aphasia [Not Recovered/Not Resolved]
  - Rhinitis [Not Recovered/Not Resolved]
  - Drug specific antibody present [Not Recovered/Not Resolved]
  - Multimorbidity [Unknown]
  - Drug intolerance [Not Recovered/Not Resolved]
  - Hypoaesthesia [Unknown]
  - Influenza like illness [Unknown]
  - Chills [Unknown]
  - Nasopharyngitis [Recovering/Resolving]
  - Drug ineffective [Unknown]
